FAERS Safety Report 19945688 (Version 10)
Quarter: 2024Q3

REPORT INFORMATION
  Report Type: Spontaneous
  Country: US (occurrence: US)
  Receive Date: 20211012
  Receipt Date: 20240710
  Transmission Date: 20241017
  Serious: Yes (Other)
  Sender: PFIZER
  Company Number: US-PFIZER INC-2021684023

PATIENT
  Age: 55 Year
  Sex: Female

DRUGS (6)
  1. IBRANCE [Suspect]
     Active Substance: PALBOCICLIB
     Indication: Breast cancer metastatic
     Dosage: 125 MG
     Route: 048
     Dates: end: 20200201
  2. IBRANCE [Suspect]
     Active Substance: PALBOCICLIB
     Dosage: 100 MG
     Route: 048
     Dates: start: 20200201, end: 20240630
  3. FULVESTRANT [Suspect]
     Active Substance: FULVESTRANT
     Indication: Breast cancer metastatic
     Dosage: UNK
  4. FULVESTRANT [Suspect]
     Active Substance: FULVESTRANT
     Dosage: 100 MG
     Dates: start: 202002
  5. COVID-19 VACCINE [Concomitant]
     Dosage: UNK
     Dates: start: 20210318, end: 20210318
  6. JANSSEN COVID-19 VACCINE [Concomitant]
     Active Substance: AD26.COV2.S
     Dosage: UNK
     Dates: start: 20210318

REACTIONS (15)
  - Thrombosis [Unknown]
  - Cholecystectomy [Recovering/Resolving]
  - Intestinal obstruction [Unknown]
  - Fatigue [Not Recovered/Not Resolved]
  - Lymphoedema [Unknown]
  - Stomatitis [Recovered/Resolved]
  - Illness [Unknown]
  - White blood cell count decreased [Unknown]
  - Alopecia [Unknown]
  - Sexual dysfunction [Unknown]
  - Dental caries [Not Recovered/Not Resolved]
  - Parosmia [Not Recovered/Not Resolved]
  - Neoplasm progression [Not Recovered/Not Resolved]
  - Palpitations [Unknown]
  - Abdominal distension [Unknown]

NARRATIVE: CASE EVENT DATE: 20220101
